FAERS Safety Report 20779320 (Version 1)
Quarter: 2022Q2

REPORT INFORMATION
  Report Type: Spontaneous
  Country: US (occurrence: None)
  Receive Date: 20220503
  Receipt Date: 20220503
  Transmission Date: 20220721
  Serious: No
  Sender: FDA-Public Use
  Company Number: None

PATIENT

DRUGS (2)
  1. THROMBIN [Suspect]
     Active Substance: THROMBIN
  2. THROMBATE III [Suspect]
     Active Substance: ANTITHROMBIN III HUMAN

REACTIONS (2)
  - Product name confusion [None]
  - Product dispensing error [None]
